FAERS Safety Report 25853210 (Version 2)
Quarter: 2025Q4

REPORT INFORMATION
  Report Type: Report from Study
  Country: US (occurrence: US)
  Receive Date: 20250926
  Receipt Date: 20251013
  Transmission Date: 20260118
  Serious: Yes (Other)
  Sender: ABBVIE
  Company Number: US-ABBVIE-6472395

PATIENT
  Age: 57 Year
  Sex: Male

DRUGS (1)
  1. SKYRIZI [Suspect]
     Active Substance: RISANKIZUMAB-RZAA
     Indication: Psoriasis
     Route: 058
     Dates: start: 20240604

REACTIONS (4)
  - Shoulder operation [Recovering/Resolving]
  - Psoriasis [Unknown]
  - Rotator cuff repair [Unknown]
  - Papule [Unknown]

NARRATIVE: CASE EVENT DATE: 20250801
